FAERS Safety Report 19724755 (Version 3)
Quarter: 2022Q2

REPORT INFORMATION
  Report Type: Report from Study
  Country: US (occurrence: US)
  Receive Date: 20210819
  Receipt Date: 20220601
  Transmission Date: 20220721
  Serious: Yes (Other)
  Sender: FDA-Public Use
  Company Number: US-NOVARTISPH-NVSC2021US184874

PATIENT
  Age: 64 Year
  Sex: Male

DRUGS (5)
  1. ENTRESTO [Suspect]
     Active Substance: SACUBITRIL\VALSARTAN
     Indication: Product used for unknown indication
     Dosage: 50 MG (24/26 MG)
     Route: 065
     Dates: start: 20210416
  2. ENTRESTO [Suspect]
     Active Substance: SACUBITRIL\VALSARTAN
     Dosage: 100 MG (49/51 MG)
     Route: 065
  3. CARVEDILOL [Suspect]
     Active Substance: CARVEDILOL
     Indication: Product used for unknown indication
     Dosage: 3.125 MG, UNKNOWN
     Route: 065
  4. CARVEDILOL [Suspect]
     Active Substance: CARVEDILOL
     Dosage: 6.25 MG, UNKNOWN
     Route: 065
  5. MAGNESIUM [Concomitant]
     Active Substance: MAGNESIUM
     Indication: Product used for unknown indication
     Dosage: 400 MG, QD (DAILY)
     Route: 065

REACTIONS (7)
  - Atrial fibrillation [Unknown]
  - Myocardial fibrosis [Not Recovered/Not Resolved]
  - Weight decreased [Unknown]
  - Chest pain [Not Recovered/Not Resolved]
  - Ventricular extrasystoles [Unknown]
  - Systolic dysfunction [Recovering/Resolving]
  - Exercise tolerance decreased [Not Recovered/Not Resolved]

NARRATIVE: CASE EVENT DATE: 20210416
